FAERS Safety Report 22165019 (Version 1)
Quarter: 2023Q2

REPORT INFORMATION
  Report Type: Spontaneous
  Country: BE (occurrence: BE)
  Receive Date: 20230403
  Receipt Date: 20230403
  Transmission Date: 20230722
  Serious: Yes (Hospitalization, Other)
  Sender: FDA-Public Use
  Company Number: None

PATIENT
  Age: 38 Year
  Sex: Female
  Weight: 54 kg

DRUGS (8)
  1. ELOXATIN [Suspect]
     Active Substance: OXALIPLATIN
     Indication: Adenocarcinoma
     Dosage: 85 MG/M? EVERY 2WEEKS08-12/2018: 8 CYCLES OF CHEMOTHERAPY WITH FOLFOX-BEVACIZUMAB (= WITH OXALIPLATI
     Route: 041
     Dates: start: 20180828, end: 20201222
  2. EMEND [Concomitant]
     Active Substance: APREPITANT
     Indication: Product used for unknown indication
     Dosage: UNKNOWN
     Route: 065
  3. SOLU-MEDROL [Concomitant]
     Active Substance: METHYLPREDNISOLONE SODIUM SUCCINATE
     Indication: Product used for unknown indication
     Dosage: UNKNOWN
     Route: 065
  4. TROPISETRON HYDROCHLORIDE [Concomitant]
     Active Substance: TROPISETRON HYDROCHLORIDE
     Indication: Product used for unknown indication
     Dosage: UNKNOWN
     Route: 065
  5. ATROPINE [Concomitant]
     Active Substance: ATROPINE
     Indication: Product used for unknown indication
     Dosage: 0.13MG
     Route: 065
  6. PRIMPERAN [Concomitant]
     Active Substance: METOCLOPRAMIDE HYDROCHLORIDE
     Indication: Product used for unknown indication
     Dosage: UNKNOWN
     Route: 065
  7. ATORVASTATIN CALCIUM [Concomitant]
     Active Substance: ATORVASTATIN CALCIUM
     Indication: Product used for unknown indication
     Dosage: 270MGGIVEN THE SAME DAY BEFORE OXALIPLATINE ADMINISTRATION
     Route: 065
  8. IRINOTECAN [Concomitant]
     Active Substance: IRINOTECAN
     Indication: Product used for unknown indication
     Dosage: 223MGGIVEN THE SAME DAY BEFORE OXALIPLATINE ADMINISTRATION
     Route: 065

REACTIONS (11)
  - Pallor [Recovered/Resolved]
  - Head discomfort [Recovered/Resolved]
  - Chills [Recovered/Resolved]
  - Eyelid oedema [Recovering/Resolving]
  - Erythema [Recovered/Resolved]
  - Paraesthesia oral [Recovered/Resolved]
  - Rash [Recovered/Resolved]
  - Asthenia [Recovered/Resolved]
  - Anaphylactic shock [Recovered/Resolved]
  - Heart rate increased [Recovered/Resolved]
  - Hypotension [Recovered/Resolved]

NARRATIVE: CASE EVENT DATE: 20201222
